FAERS Safety Report 6215259-8 (Version None)
Quarter: 2009Q2

REPORT INFORMATION
  Report Type: 
  Country: None (occurrence: None)
  Receive Date: 20090604
  Receipt Date: 20090526
  Transmission Date: 20091009
  Serious: Yes (Other)
  Sender: FDA-Public Use
  Company Number: GB-ABBOTT-09P-167-0570966-00

PATIENT
  Sex: Female

DRUGS (7)
  1. HUMIRA [Suspect]
     Indication: RHEUMATOID ARTHRITIS
     Route: 058
     Dates: start: 20090428, end: 20090428
  2. UNKNOWN ORAL MEDICATION [Concomitant]
     Indication: DIABETES MELLITUS
  3. UNKNOWN STATINS [Concomitant]
     Indication: BLOOD CHOLESTEROL INCREASED
  4. DYSO PYRAMIDD [Concomitant]
     Indication: DRUG USE FOR UNKNOWN INDICATION
  5. ROSIGLITAZONE [Concomitant]
     Indication: DRUG USE FOR UNKNOWN INDICATION
  6. PERINDOPINE [Concomitant]
     Indication: DRUG USE FOR UNKNOWN INDICATION
  7. ASPIRIN [Concomitant]
     Indication: DRUG USE FOR UNKNOWN INDICATION

REACTIONS (8)
  - ANXIETY [None]
  - CHEST DISCOMFORT [None]
  - CHEST PAIN [None]
  - FEELING HOT [None]
  - HOT FLUSH [None]
  - NAUSEA [None]
  - NIGHTMARE [None]
  - PALPITATIONS [None]
